FAERS Safety Report 8516671-4 (Version None)
Quarter: 2012Q3

REPORT INFORMATION
  Report Type: 
  Country: None (occurrence: None)
  Receive Date: 20120706
  Receipt Date: 20120703
  Transmission Date: 20120928
  Serious: Yes (Hospitalization)
  Sender: FDA-Public Use
  Company Number: DAV-AE-MTX-12-44

PATIENT
  Age: 55 Year
  Sex: Female
  Weight: 105.5 kg

DRUGS (12)
  1. FOLIC ACID [Concomitant]
  2. HUMIRA [Suspect]
     Indication: RHEUMATOID ARTHRITIS
     Dosage: UNK (1 IN 2 WK), SC; 14 DAYS; (1 IN 2 WK), SUBCUTANEOUS
     Route: 058
     Dates: start: 20120405, end: 20120419
  3. HUMIRA [Suspect]
     Indication: RHEUMATOID ARTHRITIS
     Dosage: UNK (1 IN 2 WK), SC; 14 DAYS; (1 IN 2 WK), SUBCUTANEOUS
     Route: 058
     Dates: start: 20120517
  4. HUMIRA [Suspect]
     Indication: RHEUMATOID ARTHRITIS
     Dosage: UNK (1 IN 2 WK), SC; 14 DAYS; (1 IN 2 WK), SUBCUTANEOUS
     Route: 058
  5. CEPHALEXIN [Concomitant]
  6. METHOTREXATE SODIUM [Suspect]
     Indication: RHEUMATOID ARTHRITIS
     Dosage: UNK (1 IN 1 WK), ORAL; 21 DAYS; (1 IN 1 WK), ORAL
     Route: 048
     Dates: start: 20120517
  7. METHOTREXATE SODIUM [Suspect]
     Indication: RHEUMATOID ARTHRITIS
     Dosage: UNK (1 IN 1 WK), ORAL; 21 DAYS; (1 IN 1 WK), ORAL
     Route: 048
     Dates: start: 20120405, end: 20120426
  8. COMMERCIAL METHOTREXATE (METHOTREXATE SODIUM) [Concomitant]
  9. PREDNISONE [Concomitant]
  10. NITROGLYCERIN [Concomitant]
  11. BACTRIM [Concomitant]
  12. MELOXICAM [Concomitant]

REACTIONS (1)
  - PNEUMONIA LEGIONELLA [None]
